FAERS Safety Report 6400995-0 (Version None)
Quarter: 2009Q4

REPORT INFORMATION
  Report Type: 
  Country: None (occurrence: None)
  Receive Date: 20091013
  Receipt Date: 20091013
  Transmission Date: 20100525
  Serious: Yes (Hospitalization)
  Sender: FDA-Public Use
  Company Number: None

PATIENT
  Age: 56 Year
  Sex: Female
  Weight: 43.6 kg

DRUGS (2)
  1. SEROQUEL [Suspect]
     Indication: SCHIZOPHRENIA
     Dosage: 400MG ,100MG   PO QHS
     Route: 048
     Dates: start: 20050401, end: 20090413
  2. SEROQUEL [Suspect]
     Indication: SCHIZOPHRENIA
     Dosage: 400MG ,100MG   PO QHS
     Route: 048
     Dates: start: 20090714, end: 20090725

REACTIONS (3)
  - DISORIENTATION [None]
  - PSYCHOTIC DISORDER [None]
  - TREATMENT NONCOMPLIANCE [None]
